FAERS Safety Report 7559132-1 (Version None)
Quarter: 2011Q2

REPORT INFORMATION
  Report Type: 
  Country: None (occurrence: None)
  Receive Date: 20110621
  Receipt Date: 20110512
  Transmission Date: 20111010
  Serious: No
  Sender: FDA-Public Use
  Company Number: US-MYLANLABS-2011S1010113

PATIENT
  Age: 8 Decade
  Sex: Female

DRUGS (7)
  1. PREDNISONE [Concomitant]
  2. LASIX [Concomitant]
  3. ALDACTONE [Concomitant]
  4. COREG [Concomitant]
  5. NIFEDIPINE [Suspect]
     Indication: BLOOD PRESSURE
     Dates: start: 20101201
  6. PLAVIX [Concomitant]
  7. PEPCID [Concomitant]

REACTIONS (7)
  - HEADACHE [None]
  - DIZZINESS [None]
  - ABDOMINAL PAIN [None]
  - CONSTIPATION [None]
  - VISUAL IMPAIRMENT [None]
  - FLATULENCE [None]
  - CHEST PAIN [None]
